FAERS Safety Report 14995422 (Version 1)
Quarter: 2018Q2

REPORT INFORMATION
  Report Type: Spontaneous
  Country: US (occurrence: US)
  Receive Date: 20180611
  Receipt Date: 20180611
  Transmission Date: 20180711
  Serious: No
  Sender: FDA-Public Use
  Company Number: US-SA-2018SA148448

PATIENT
  Age: 37 Year
  Sex: Male
  Weight: 89.81 kg

DRUGS (15)
  1. LOSARTAN. [Concomitant]
     Active Substance: LOSARTAN
     Dosage: 100 MG, BID
     Route: 048
     Dates: start: 20180303
  2. OLOPATADINE. [Concomitant]
     Active Substance: OLOPATADINE
     Dosage: 0.2 %, QD
     Route: 031
     Dates: start: 20171216
  3. PREDNISONE. [Concomitant]
     Active Substance: PREDNISONE
     Dosage: 3 DF, AS DIRECTED
     Route: 048
     Dates: start: 20150909
  4. VERAPAMIL [Concomitant]
     Active Substance: VERAPAMIL HYDROCHLORIDE
     Dosage: 1 TAB BY MOUTH, TWICE DAILY
     Route: 048
     Dates: start: 20150909
  5. DIPHENHYDRAMINE. [Concomitant]
     Active Substance: DIPHENHYDRAMINE
     Dosage: 50 MG BY MOUTH PRIOR
     Route: 048
     Dates: start: 20101206
  6. TEGRETOL [Concomitant]
     Active Substance: CARBAMAZEPINE
     Dosage: 2 DF BY MOTH MORNING AND EVENING
     Route: 048
     Dates: start: 20150909
  7. BUTALBITAL AND ACETAMINOPHEN [Concomitant]
     Active Substance: ACETAMINOPHEN\BUTALBITAL
     Dosage: 1 DOSE BY MOUTH AS DIRECTED
     Route: 048
     Dates: start: 20120515
  8. PANTOPRAZOLE [Concomitant]
     Active Substance: PANTOPRAZOLE
     Dosage: 1 DF, QD
     Route: 048
     Dates: start: 20150909
  9. DICLOFENAC [Concomitant]
     Active Substance: DICLOFENAC
     Dosage: 1 DF, BID
     Route: 048
     Dates: start: 20120515
  10. FABRAZYME [Suspect]
     Active Substance: AGALSIDASE BETA
     Indication: FABRY^S DISEASE
  11. FLONASE [FLUTICASONE PROPIONATE] [Concomitant]
     Dosage: 50 UNK, BID
     Route: 045
     Dates: start: 20171216
  12. FIORICET [Concomitant]
     Active Substance: ACETAMINOPHEN\BUTALBITAL\CAFFEINE
     Dosage: 1 DOSE BY MOUTH AS DIRECTED
     Route: 048
     Dates: start: 20120316
  13. FABRAZYME [Suspect]
     Active Substance: AGALSIDASE BETA
     Indication: LIPIDOSIS
     Dosage: 1 MG/KG, QOW
     Route: 041
  14. NORTRIPTYLINE [Concomitant]
     Active Substance: NORTRIPTYLINE
     Dosage: 2 TAB BY MOUTH AT BEDTIME
     Route: 048
     Dates: start: 20150909
  15. IBUPROFEN. [Concomitant]
     Active Substance: IBUPROFEN
     Dosage: 600 MG BY MOUTH AS DIRECTED
     Route: 048
     Dates: start: 20120515

REACTIONS (1)
  - Chills [Unknown]
